FAERS Safety Report 8159799-3 (Version None)
Quarter: 2012Q1

REPORT INFORMATION
  Report Type: 
  Country: None (occurrence: None)
  Receive Date: 20120223
  Receipt Date: 20120221
  Transmission Date: 20120608
  Serious: Yes (Hospitalization)
  Sender: FDA-Public Use
  Company Number: US-ACTELION-A-NJ2012-59383

PATIENT

DRUGS (5)
  1. VENTAVIS [Suspect]
     Indication: PULMONARY ARTERIAL HYPERTENSION
     Dosage: UNK
     Route: 055
     Dates: start: 20111024, end: 20120101
  2. CALCIUM CHANNEL BLOCKERS [Concomitant]
  3. OXYGEN [Concomitant]
  4. VENTAVIS [Suspect]
     Dosage: UNK
     Route: 055
     Dates: start: 20120101
  5. ADCIRCA [Concomitant]

REACTIONS (3)
  - DEHYDRATION [None]
  - SCLERODERMA [None]
  - PNEUMONIA [None]
